FAERS Safety Report 6317057-3 (Version None)
Quarter: 2009Q3

REPORT INFORMATION
  Report Type: 
  Country: None (occurrence: None)
  Receive Date: 20090820
  Receipt Date: 20090817
  Transmission Date: 20100115
  Serious: Yes (Death, Hospitalization)
  Sender: FDA-Public Use
  Company Number: JP-PFIZER INC-2009213529

PATIENT
  Age: 61 Year

DRUGS (1)
  1. REVATIO [Suspect]
     Indication: PULMONARY HYPERTENSION
     Route: 048

REACTIONS (3)
  - DECREASED APPETITE [None]
  - IDIOPATHIC PULMONARY FIBROSIS [None]
  - MALAISE [None]
